FAERS Safety Report 6460509-6 (Version None)
Quarter: 2009Q4

REPORT INFORMATION
  Report Type: 
  Country: None (occurrence: None)
  Receive Date: 20091125
  Receipt Date: 20091125
  Transmission Date: 20100525
  Serious: No
  Sender: FDA-Public Use
  Company Number: None

PATIENT
  Sex: Female

DRUGS (2)
  1. ACYCLOVIR [Suspect]
  2. PERCOCET [Suspect]

REACTIONS (2)
  - MEDICATION ERROR [None]
  - STEVENS-JOHNSON SYNDROME [None]
